FAERS Safety Report 8589815-6 (Version None)
Quarter: 2012Q3

REPORT INFORMATION
  Report Type: 
  Country: None (occurrence: None)
  Receive Date: 20120813
  Receipt Date: 19881104
  Transmission Date: 20120928
  Serious: Yes (Other)
  Sender: FDA-Public Use
  Company Number: US-ROCHE-1098689

PATIENT
  Age: 61 Year
  Sex: Female

DRUGS (5)
  1. CARDIZEM [Concomitant]
  2. ASPIRIN [Concomitant]
  3. ACTIVASE [Suspect]
     Indication: PRODUCT USED FOR UNKNOWN INDICATION
  4. THEO-DUR [Concomitant]
  5. PERSANTINE [Concomitant]

REACTIONS (2)
  - VENTRICULAR TACHYCARDIA [None]
  - VENTRICULAR EXTRASYSTOLES [None]
